FAERS Safety Report 4640564-6 (Version None)
Quarter: 2005Q2

REPORT INFORMATION
  Report Type: 
  Country: None (occurrence: None)
  Receive Date: 20050321
  Receipt Date: 20040430
  Transmission Date: 20051028
  Serious: Yes (Other)
  Sender: FDA-Public Use
  Company Number: 2004-04-2189

PATIENT
  Age: 45 Year
  Sex: Female
  Weight: 94.8018 kg

DRUGS (6)
  1. PEG-INTRON [Suspect]
     Indication: HEPATITIS C
     Dosage: 150 MCG QW SUBCUTANEOUS
     Route: 058
     Dates: start: 20040305, end: 20040513
  2. REBETOL [Suspect]
     Indication: HEPATITIS C
     Dosage: 600 MG BID ORAL
     Route: 048
     Dates: start: 20040305, end: 20040513
  3. ATIVAN [Concomitant]
  4. LEXAPRO [Concomitant]
  5. PROTONIX [Concomitant]
  6. RISPERDAL [Concomitant]

REACTIONS (4)
  - PHOTOPSIA [None]
  - RETINAL EXUDATES [None]
  - VISUAL DISTURBANCE [None]
  - VITREOUS FLOATERS [None]
